FAERS Safety Report 17907936 (Version 1)
Quarter: 2020Q2

REPORT INFORMATION
  Report Type: Spontaneous
  Country: US (occurrence: US)
  Receive Date: 20200617
  Receipt Date: 20200617
  Transmission Date: 20200714
  Serious: Yes (Other)
  Sender: FDA-Public Use
  Company Number: None

PATIENT
  Age: 48 Year
  Sex: Male
  Weight: 101.25 kg

DRUGS (6)
  1. BYDUREON BCISE [Suspect]
     Active Substance: EXENATIDE
     Indication: TYPE 2 DIABETES MELLITUS
     Dosage: ?          QUANTITY:1 PEN;?
     Route: 058
  2. SYNJARDY [Concomitant]
     Active Substance: EMPAGLIFLOZIN\METFORMIN HYDROCHLORIDE
  3. TRICOR [Concomitant]
     Active Substance: FENOFIBRATE
  4. FISH OIL [Concomitant]
     Active Substance: FISH OIL
  5. METFORMIN [Concomitant]
     Active Substance: METFORMIN HYDROCHLORIDE
  6. ELIQUIS [Concomitant]
     Active Substance: APIXABAN

REACTIONS (3)
  - Device failure [None]
  - Incorrect dose administered [None]
  - Blood glucose increased [None]

NARRATIVE: CASE EVENT DATE: 20200616
